FAERS Safety Report 9768933 (Version 1)
Quarter: 2013Q4

REPORT INFORMATION
  Report Type: Spontaneous
  Country: US (occurrence: None)
  Receive Date: 20131217
  Receipt Date: 20131217
  Transmission Date: 20140711
  Serious: No
  Sender: FDA-Public Use
  Company Number: None

PATIENT
  Age: 63 Year
  Sex: Female
  Weight: 78.02 kg

DRUGS (1)
  1. PROTONIX [Suspect]
     Dosage: 30 ONCE DAILY TAKEN BY MOUTH
     Dates: start: 20131206, end: 20131212

REACTIONS (6)
  - Dizziness [None]
  - Headache [None]
  - Diarrhoea [None]
  - Abdominal pain upper [None]
  - Abdominal pain upper [None]
  - Nausea [None]
